FAERS Safety Report 15956035 (Version 2)
Quarter: 2019Q1

REPORT INFORMATION
  Report Type: Spontaneous
  Country: FR (occurrence: FR)
  Receive Date: 20190213
  Receipt Date: 20190315
  Transmission Date: 20190417
  Serious: Yes (Hospitalization)
  Sender: FDA-Public Use
  Company Number: FR-009507513-1902FRA001823

PATIENT
  Sex: Female

DRUGS (4)
  1. SINEMET [Suspect]
     Active Substance: CARBIDOPA\LEVODOPA
     Indication: PARKINSON^S DISEASE
     Dosage: 1 TABLET AND A HALF
     Route: 048
  2. MADOPAR [Suspect]
     Active Substance: BENSERAZIDE HYDROCHLORIDE\LEVODOPA
     Indication: PARKINSON^S DISEASE
     Dosage: MAXIMUM OF 2 TABLETS DAILY IN CASE OF ^LOCKING^ (2 HOURS WITHOUT PARTICULAR MOVEMENT)
  3. SINEMET [Suspect]
     Active Substance: CARBIDOPA\LEVODOPA
     Indication: PARKINSON^S DISEASE
     Dosage: 6 TABLETS AT 8H AM, 10H30 AM, 01H PM, 03H30 PM, 06H PM AND 08H30 PM (1 TABLET EVERY 2 HOURS)
     Route: 048
  4. MADOPAR [Suspect]
     Active Substance: BENSERAZIDE HYDROCHLORIDE\LEVODOPA
     Dosage: ONE HALF OF ORODISPERSIBLE TABLED DAILY

REACTIONS (6)
  - Wrong technique in product usage process [Unknown]
  - Adverse event [Unknown]
  - Product dose omission [Unknown]
  - Dyskinesia [Unknown]
  - Product availability issue [Unknown]
  - Micturition disorder [Unknown]
